FAERS Safety Report 19606991 (Version 2)
Quarter: 2021Q3

REPORT INFORMATION
  Report Type: Report from Study
  Country: US (occurrence: US)
  Receive Date: 20210726
  Receipt Date: 20210917
  Transmission Date: 20211014
  Serious: Yes (Life-Threatening, Hospitalization, Other)
  Sender: FDA-Public Use
  Company Number: US-BRISTOL-MYERS SQUIBB COMPANY-BMS-2021-070980

PATIENT
  Age: 66 Year
  Sex: Male
  Weight: 78.9 kg

DRUGS (2)
  1. DS3201 [Suspect]
     Active Substance: INVESTIGATIONAL PRODUCT
     Indication: PROSTATE CANCER METASTATIC
     Dosage: 150 MILLIGRAM
     Route: 048
     Dates: start: 20210517, end: 20210627
  2. IPILIMUMAB [Suspect]
     Active Substance: IPILIMUMAB
     Indication: PROSTATE CANCER METASTATIC
     Dosage: 250 MILLIGRAM/KILOGRAM
     Route: 042
     Dates: start: 20210517, end: 20210517

REACTIONS (1)
  - Pulmonary embolism [Unknown]

NARRATIVE: CASE EVENT DATE: 20210719
